FAERS Safety Report 16045682 (Version 1)
Quarter: 2019Q1

REPORT INFORMATION
  Report Type: Spontaneous
  Country: GR (occurrence: GR)
  Receive Date: 20190307
  Receipt Date: 20190307
  Transmission Date: 20190418
  Serious: Yes (Other)
  Sender: FDA-Public Use
  Company Number: GR-BAXTER-2019BAX004521

PATIENT
  Age: 75 Year
  Sex: Female

DRUGS (16)
  1. ENDOXAN 1000 MG - POWDER FOR SOLUTION FOR INJECTION [Suspect]
     Active Substance: CYCLOPHOSPHAMIDE
     Indication: INVASIVE LOBULAR BREAST CARCINOMA
     Dosage: 3 CYCLES OF ADRIAMYCIN-CYCLOPHOSPHAMIDE
     Route: 065
     Dates: start: 201701, end: 201703
  2. XELODA [Suspect]
     Active Substance: CAPECITABINE
     Indication: DISEASE PROGRESSION
     Dosage: 3-0-2 (D1-14)
     Route: 065
     Dates: start: 20171103, end: 20181101
  3. DENOSUMAB [Concomitant]
     Active Substance: DENOSUMAB
     Indication: PRODUCT USED FOR UNKNOWN INDICATION
     Route: 065
  4. XGEVA [Concomitant]
     Active Substance: DENOSUMAB
     Indication: BONE LESION
     Route: 065
  5. DENOSUMAB [Concomitant]
     Active Substance: DENOSUMAB
     Dosage: FASLODEX-DENOSUMAB THERAPY
     Route: 065
     Dates: start: 201607, end: 201701
  6. FEMARA [Concomitant]
     Active Substance: LETROZOLE
     Indication: BONE LESION
     Route: 065
  7. PACLITAXEL. [Concomitant]
     Active Substance: PACLITAXEL
     Indication: PRODUCT USED FOR UNKNOWN INDICATION
     Route: 065
  8. FASLODEX [Concomitant]
     Active Substance: FULVESTRANT
     Indication: PRODUCT USED FOR UNKNOWN INDICATION
     Dosage: FASLODEX-DENOSUMAB THERAPY
     Route: 065
     Dates: start: 201607, end: 201701
  9. ABRAXANE [Suspect]
     Active Substance: PACLITAXEL
     Dosage: 8TH CYCLE
     Route: 065
     Dates: start: 20170929, end: 20170929
  10. AROMASIN [Concomitant]
     Active Substance: EXEMESTANE
     Indication: METASTASES TO LIVER
     Route: 065
  11. ENDOXAN 1000 MG - POWDER FOR SOLUTION FOR INJECTION [Suspect]
     Active Substance: CYCLOPHOSPHAMIDE
     Indication: BREAST CANCER METASTATIC
  12. ADRIAMYCIN [Suspect]
     Active Substance: DOXORUBICIN HYDROCHLORIDE
     Indication: BREAST CANCER METASTATIC
  13. ABRAXANE [Suspect]
     Active Substance: PACLITAXEL
     Indication: DISEASE PROGRESSION
     Dosage: 6 CYCLES
     Route: 065
     Dates: start: 20170331
  14. AFINITOR [Concomitant]
     Active Substance: EVEROLIMUS
     Indication: METASTASES TO LIVER
     Route: 065
  15. ADRIAMYCIN [Suspect]
     Active Substance: DOXORUBICIN HYDROCHLORIDE
     Indication: INVASIVE LOBULAR BREAST CARCINOMA
     Dosage: 3 CYCLES OF ADRIAMYCIN-CYCLOPHOSPHAMIDE
     Route: 065
     Dates: start: 201701, end: 201703
  16. PALBOCICLIB [Suspect]
     Active Substance: PALBOCICLIB
     Indication: DISEASE PROGRESSION
     Route: 065
     Dates: start: 20181121

REACTIONS (2)
  - Neutropenia [Unknown]
  - Disease progression [Unknown]

NARRATIVE: CASE EVENT DATE: 201703
